FAERS Safety Report 7001317-7 (Version None)
Quarter: 2010Q3

REPORT INFORMATION
  Report Type: 
  Country: None (occurrence: None)
  Receive Date: 20100920
  Receipt Date: 20100428
  Transmission Date: 20110219
  Serious: No
  Sender: FDA-Public Use
  Company Number: US-ASTRAZENECA-2010SE19234

PATIENT
  Age: 44 Year
  Sex: Male
  Weight: 79.8 kg

DRUGS (1)
  1. SEROQUEL [Suspect]
     Indication: SCHIZOAFFECTIVE DISORDER BIPOLAR TYPE
     Route: 048

REACTIONS (6)
  - COGNITIVE DISORDER [None]
  - DRUG DOSE OMISSION [None]
  - HALLUCINATION, AUDITORY [None]
  - INSOMNIA [None]
  - MOOD ALTERED [None]
  - THINKING ABNORMAL [None]
